FAERS Safety Report 7289488-9 (Version None)
Quarter: 2011Q1

REPORT INFORMATION
  Report Type: 
  Country: None (occurrence: None)
  Receive Date: 20110211
  Receipt Date: 20110201
  Transmission Date: 20110831
  Serious: Yes (Hospitalization, Other)
  Sender: FDA-Public Use
  Company Number: US-MERCK-0907USA05808

PATIENT
  Age: 84 Year
  Sex: Female
  Weight: 51 kg

DRUGS (4)
  1. FOSAMAX PLUS D [Suspect]
     Indication: OSTEOPOROSIS
     Route: 048
     Dates: start: 20070209, end: 20070809
  2. LISINOPRIL [Concomitant]
     Indication: BLOOD PRESSURE
     Route: 065
     Dates: start: 19930101
  3. FOSAMAX [Suspect]
     Indication: OSTEOPOROSIS
     Route: 048
     Dates: start: 20030909, end: 20070209
  4. ESTRADIOL [Concomitant]
     Indication: HORMONE REPLACEMENT THERAPY
     Route: 065
     Dates: start: 20030101, end: 20070101

REACTIONS (26)
  - GLAUCOMA [None]
  - BREATH ODOUR [None]
  - MASTICATION DISORDER [None]
  - INFECTION [None]
  - JAW FRACTURE [None]
  - NERVE INJURY [None]
  - TOOTHACHE [None]
  - TOOTH ABSCESS [None]
  - PERIODONTITIS [None]
  - PERIODONTAL DISEASE [None]
  - FAECAL INCONTINENCE [None]
  - RENAL FAILURE CHRONIC [None]
  - DEVICE FAILURE [None]
  - OSTEOMYELITIS [None]
  - ABSCESS [None]
  - TRISMUS [None]
  - IMPLANT SITE PAIN [None]
  - FRACTURE DELAYED UNION [None]
  - ORAL INFECTION [None]
  - BONE DISORDER [None]
  - GLUCOSE TOLERANCE IMPAIRED [None]
  - GRANULOMA [None]
  - OSTEONECROSIS OF JAW [None]
  - EYE COMPLICATION ASSOCIATED WITH DEVICE [None]
  - HYPOAESTHESIA [None]
  - EYE DISORDER [None]
